FAERS Safety Report 10017435 (Version 1)
Quarter: 2014Q1

REPORT INFORMATION
  Report Type: Spontaneous
  Country: US (occurrence: US)
  Receive Date: 20140318
  Receipt Date: 20140318
  Transmission Date: 20141002
  Serious: No
  Sender: FDA-Public Use
  Company Number: US-PFIZER INC-2014075659

PATIENT
  Age: 58 Year
  Sex: Female
  Weight: 126.98 kg

DRUGS (2)
  1. GABAPENTIN [Suspect]
     Indication: FIBROMYALGIA
     Dosage: 600 MG (BY TAKING 100MG IN MORNING, 500MG AT NIGHT)
     Route: 048
     Dates: start: 201305
  2. MOTRIN [Concomitant]
     Dosage: UNK

REACTIONS (2)
  - Weight increased [Unknown]
  - Fatigue [Unknown]
